FAERS Safety Report 5264822-X (Version None)
Quarter: 2007Q1

REPORT INFORMATION
  Report Type: 
  Country: None (occurrence: None)
  Receive Date: 20070314
  Receipt Date: 20070309
  Transmission Date: 20070707
  Serious: Yes (Other)
  Sender: FDA-Public Use
  Company Number: US-GLAXOSMITHKLINE-A0642616A

PATIENT
  Age: 2 Year
  Sex: Male

DRUGS (3)
  1. PAXIL [Suspect]
     Indication: POSTPARTUM DEPRESSION
     Dosage: 80MG PER DAY
     Dates: start: 19970101, end: 20060301
  2. PAXIL [Suspect]
     Indication: DEPRESSION
     Dosage: 75MG VARIABLE DOSE
     Dates: start: 20060301
  3. NO CONCURRENT MEDICATION [Concomitant]

REACTIONS (5)
  - DRUG DEPENDENCE [None]
  - DRUG EXPOSURE DURING PREGNANCY [None]
  - DRUG EXPOSURE VIA BREAST MILK [None]
  - DRUG WITHDRAWAL SYNDROME [None]
  - SLEEP TERROR [None]
